FAERS Safety Report 4394309-8 (Version None)
Quarter: 2004Q3

REPORT INFORMATION
  Report Type: 
  Country: None (occurrence: None)
  Receive Date: 20040707
  Receipt Date: 20040707
  Transmission Date: 20050211
  Serious: Yes (Other)
  Sender: FDA-Public Use
  Company Number: None

PATIENT
  Sex: Male
  Weight: 102.0593 kg

DRUGS (2)
  1. EFFEXOR [Suspect]
     Indication: ANXIETY
     Dosage: 112.5 MG 1 PER DAY ORAL
     Route: 048
     Dates: start: 19980101, end: 20040706
  2. EFFEXOR [Suspect]
     Indication: PANIC ATTACK
     Dosage: 112.5 MG 1 PER DAY ORAL
     Route: 048
     Dates: start: 19980101, end: 20040706

REACTIONS (4)
  - ABNORMAL BEHAVIOUR [None]
  - ANGER [None]
  - NERVOUS SYSTEM DISORDER [None]
  - TREMOR [None]
